FAERS Safety Report 8073862-7 (Version None)
Quarter: 2012Q1

REPORT INFORMATION
  Report Type: 
  Country: None (occurrence: None)
  Receive Date: 20120126
  Receipt Date: 20120118
  Transmission Date: 20120608
  Serious: Yes (Life-Threatening, Hospitalization)
  Sender: FDA-Public Use
  Company Number: JP-ROCHE-784064

PATIENT
  Sex: Female
  Weight: 40 kg

DRUGS (11)
  1. CALCIUM [Concomitant]
     Route: 048
  2. ALENDRONATE SODIUM [Concomitant]
     Route: 048
  3. PREDNISOLONE [Concomitant]
     Route: 048
  4. CALFINA [Concomitant]
     Route: 048
  5. CLARITHROMYCIN [Concomitant]
     Route: 048
  6. FOLIC ACID [Concomitant]
     Route: 048
  7. MAGNESIUM OXIDE [Concomitant]
     Route: 048
  8. REBAMIPIDE [Concomitant]
     Route: 048
  9. ACTEMRA [Suspect]
     Indication: RHEUMATOID ARTHRITIS
     Route: 042
     Dates: start: 20110209, end: 20110502
  10. METHOTREXATE [Concomitant]
     Dosage: PERORAL AGENT
     Route: 048
  11. SAWATENE [Concomitant]
     Route: 048

REACTIONS (2)
  - LUNG INFECTION PSEUDOMONAL [None]
  - PLEURISY [None]
